FAERS Safety Report 20840668 (Version 1)
Quarter: 2022Q2

REPORT INFORMATION
  Report Type: Spontaneous
  Country: US (occurrence: US)
  Receive Date: 20220517
  Receipt Date: 20220517
  Transmission Date: 20220721
  Serious: No
  Sender: FDA-Public Use
  Company Number: US-PFIZER INC-202200595314

PATIENT
  Sex: Female

DRUGS (1)
  1. ALPRAZOLAM [Suspect]
     Active Substance: ALPRAZOLAM
     Indication: Anxiety
     Dosage: UNK

REACTIONS (8)
  - Apathy [Unknown]
  - Feeling abnormal [Unknown]
  - Feeling drunk [Unknown]
  - Visual impairment [Unknown]
  - Drug ineffective [Unknown]
  - Panic attack [Unknown]
  - Dissociation [Unknown]
  - Loss of personal independence in daily activities [Unknown]
